FAERS Safety Report 4323606-7 (Version None)
Quarter: 2004Q1

REPORT INFORMATION
  Report Type: 
  Country: None (occurrence: None)
  Receive Date: 20040322
  Receipt Date: 20040310
  Transmission Date: 20041129
  Serious: Yes (Other)
  Sender: FDA-Public Use
  Company Number: DE-JNJFOC-20040302599

PATIENT
  Age: 16 Year
  Sex: Male
  Weight: 86 kg

DRUGS (3)
  1. REMICADE [Suspect]
     Indication: CROHN'S DISEASE
     Dosage: 1 IN 8 WEEK, INTRAVENOUS
     Route: 042
  2. IMUREK (AZATHIOPRINE) [Concomitant]
  3. AZATHIOPRIN (AZATHIOPRINE) [Concomitant]

REACTIONS (5)
  - ASTHMA [None]
  - BRONCHITIS [None]
  - BRONCHOSPASM [None]
  - DRUG INEFFECTIVE [None]
  - OSTEOPOROSIS [None]
